FAERS Safety Report 5710230-4 (Version None)
Quarter: 2008Q2

REPORT INFORMATION
  Report Type: 
  Country: None (occurrence: None)
  Receive Date: 20080418
  Receipt Date: 20080408
  Transmission Date: 20081010
  Serious: Yes (Other)
  Sender: FDA-Public Use
  Company Number: US-PFIZER INC-2008015161

PATIENT
  Sex: Female
  Weight: 78.9 kg

DRUGS (3)
  1. DILANTIN [Interacting]
     Indication: EPILEPSY
  2. KEPPRA [Suspect]
     Indication: EPILEPSY
  3. ANTIHYPERTENSIVES [Interacting]
     Indication: HYPERTENSION

REACTIONS (8)
  - DRUG INTERACTION [None]
  - DRUG TOXICITY [None]
  - FACIAL PAIN [None]
  - GAIT DISTURBANCE [None]
  - GRAND MAL CONVULSION [None]
  - HYPERTENSION [None]
  - NYSTAGMUS [None]
  - TRIGEMINAL NEURALGIA [None]
